FAERS Safety Report 5382705-1 (Version None)
Quarter: 2007Q3

REPORT INFORMATION
  Report Type: 
  Country: None (occurrence: None)
  Receive Date: 20070703
  Receipt Date: 20070703
  Transmission Date: 20080115
  Serious: Yes (Other)
  Sender: FDA-Public Use
  Company Number: None

PATIENT
  Age: 14 Year
  Sex: Male
  Weight: 106 kg

DRUGS (6)
  1. XOLAIR [Suspect]
     Indication: ASTHMA
     Dosage: 300 MG Q 2 WEEKS SQ
     Route: 058
     Dates: start: 20070201, end: 20070629
  2. ADVAIR DISKUS 100/50 [Concomitant]
  3. SINGULAIR [Concomitant]
  4. CLARITIN [Concomitant]
  5. PRILOSEC [Concomitant]
  6. NASONEX [Concomitant]

REACTIONS (3)
  - DYSPNOEA [None]
  - TACHYPNOEA [None]
  - WHEEZING [None]
